FAERS Safety Report 17975723 (Version 1)
Quarter: 2020Q3

REPORT INFORMATION
  Report Type: Spontaneous
  Country: MX (occurrence: MX)
  Receive Date: 20200702
  Receipt Date: 20200702
  Transmission Date: 20201103
  Serious: Yes (Hospitalization)
  Sender: FDA-Public Use
  Company Number: MX-BAYER-2020-133105

PATIENT
  Age: 77 Year

DRUGS (1)
  1. ULTRAVIST [Suspect]
     Active Substance: IOPROMIDE
     Indication: COMPUTERISED TOMOGRAM
     Dosage: 99 ML, ONCE

REACTIONS (6)
  - Tachycardia [None]
  - Hypotension [None]
  - Vomiting [None]
  - Tachypnoea [None]
  - Pyrexia [None]
  - Chills [None]
